FAERS Safety Report 5345512-1 (Version None)
Quarter: 2007Q2

REPORT INFORMATION
  Report Type: 
  Country: None (occurrence: None)
  Receive Date: 20070605
  Receipt Date: 20070525
  Transmission Date: 20071010
  Serious: Yes (Hospitalization)
  Sender: FDA-Public Use
  Company Number: US-ELI_LILLY_AND_COMPANY-US200705006617

PATIENT
  Age: 59 Year
  Sex: Female

DRUGS (1)
  1. FORTEO [Suspect]
     Indication: OSTEOPOROSIS
     Dosage: UNK, UNK
     Dates: start: 20070216

REACTIONS (6)
  - ASTHENIA [None]
  - CROHN'S DISEASE [None]
  - ELECTROLYTE IMBALANCE [None]
  - FALL [None]
  - FEELING ABNORMAL [None]
  - VOMITING [None]
